FAERS Safety Report 19777223 (Version 1)
Quarter: 2021Q3

REPORT INFORMATION
  Report Type: Other
  Country: CA (occurrence: CA)
  Receive Date: 20210902
  Receipt Date: 20210902
  Transmission Date: 20211014
  Serious: Yes (Life-Threatening, Hospitalization, Other)
  Sender: FDA-Public Use
  Company Number: CA-APOTEX-2021AP039788

PATIENT
  Sex: Male
  Weight: 2 kg

DRUGS (1)
  1. ACETAMINOPHEN. [Suspect]
     Active Substance: ACETAMINOPHEN
     Indication: TOOTHACHE
     Dosage: UNK
     Route: 064

REACTIONS (9)
  - Encephalopathy [Recovered/Resolved]
  - Foetal heart rate deceleration abnormality [Recovered/Resolved]
  - Hypoglycaemia [Recovered/Resolved]
  - Foetal exposure during pregnancy [Recovered/Resolved]
  - Overdose [Recovered/Resolved]
  - Metabolic acidosis [Recovered/Resolved]
  - Toxicity to various agents [Recovered/Resolved]
  - Premature baby [Recovered/Resolved]
  - Drug-induced liver injury [Recovered/Resolved]
